FAERS Safety Report 18361299 (Version 1)
Quarter: 2020Q4

REPORT INFORMATION
  Report Type: Spontaneous
  Country: US (occurrence: US)
  Receive Date: 20201008
  Receipt Date: 20201008
  Transmission Date: 20210114
  Serious: Yes (Death, Hospitalization)
  Sender: FDA-Public Use
  Company Number: US-GW PHARMA-202009USGW03319

PATIENT

DRUGS (1)
  1. EPIDIOLEX [Suspect]
     Active Substance: CANNABIDIOL
     Indication: LENNOX-GASTAUT SYNDROME
     Dosage: 250 MILLIGRAM, QD
     Route: 048
     Dates: start: 20200310

REACTIONS (2)
  - Multiple organ dysfunction syndrome [Fatal]
  - Generalised tonic-clonic seizure [Fatal]

NARRATIVE: CASE EVENT DATE: 202009
